FAERS Safety Report 4310795-3 (Version None)
Quarter: 2004Q1

REPORT INFORMATION
  Report Type: 
  Country: None (occurrence: None)
  Receive Date: 20040302
  Receipt Date: 20040212
  Transmission Date: 20041129
  Serious: Yes (Other)
  Sender: FDA-Public Use
  Company Number: 204892

PATIENT
  Age: 33 Year
  Sex: Female

DRUGS (3)
  1. RAPTIVA [Suspect]
     Indication: PSORIASIS
     Dosage: 1 MG/KG, 1/WEEK, SUBCUTANEOUS
     Route: 058
     Dates: start: 20031217, end: 20040114
  2. FLUCLOXACILLIN SODIUM  (FLUCLOXACILLIN SODIUM) [Concomitant]
  3. CYCLOSPORINE [Suspect]

REACTIONS (5)
  - ALANINE AMINOTRANSFERASE INCREASED [None]
  - BILIARY DILATATION [None]
  - BLOOD ALKALINE PHOSPHATASE INCREASED [None]
  - GAMMA-GLUTAMYLTRANSFERASE INCREASED [None]
  - LOWER RESPIRATORY TRACT INFECTION [None]
